FAERS Safety Report 8709231 (Version 7)
Quarter: 2014Q1

REPORT INFORMATION
  Report Type: Report from Study
  Country: CA (occurrence: CA)
  Receive Date: 20120806
  Receipt Date: 20140326
  Transmission Date: 20141002
  Serious: Yes (Other)
  Sender: FDA-Public Use
  Company Number: CA-ROCHE-785471

PATIENT
  Age: 43 Year
  Sex: Female
  Weight: 63.5 kg

DRUGS (26)
  1. RITUXAN [Suspect]
     Indication: RHEUMATOID ARTHRITIS
     Route: 042
  2. RITUXAN [Suspect]
     Route: 042
  3. RITUXAN [Suspect]
     Route: 042
  4. BENADRYL (CANADA) [Suspect]
     Indication: THROAT IRRITATION
     Route: 048
     Dates: start: 20130128, end: 20130128
  5. BENADRYL (CANADA) [Suspect]
     Indication: EAR PRURITUS
  6. CORTISONE [Concomitant]
  7. TYLENOL [Concomitant]
  8. FOLIC ACID [Concomitant]
     Route: 065
  9. BIAXIN XL [Concomitant]
     Route: 048
  10. FLOVENT [Concomitant]
     Route: 065
  11. NOVO-SALMOL [Concomitant]
     Dosage: 2 PUFS 4 TIMES A DAY PRN
     Route: 065
  12. PMS-HYDROMORPHONE [Concomitant]
     Dosage: PRN
     Route: 048
  13. RATIO-SALBUTAMOL [Concomitant]
     Dosage: 4-6 HOURS PRN
     Route: 065
  14. ADVAIR [Concomitant]
     Route: 065
  15. PREDNISONE [Concomitant]
     Route: 065
  16. CODEINE HYDROCHLORIDE [Concomitant]
  17. DIPHENHYDRAMIN-HCL [Concomitant]
     Indication: PREMEDICATION
     Route: 048
     Dates: start: 20120725, end: 20120725
  18. DIPHENHYDRAMIN-HCL [Concomitant]
     Route: 048
     Dates: start: 20101124
  19. ACETAMINOFEN [Concomitant]
     Indication: PREMEDICATION
     Route: 048
     Dates: start: 20120725, end: 20120725
  20. ACETAMINOFEN [Concomitant]
     Route: 065
     Dates: start: 20101124
  21. ACETAMINOFEN [Concomitant]
     Route: 065
     Dates: start: 20111122
  22. ACETAMINOFEN [Concomitant]
     Route: 065
     Dates: start: 20120712
  23. ACETAMINOFEN [Concomitant]
     Route: 065
     Dates: start: 20130129
  24. METHYLPREDNISOLON [Concomitant]
     Indication: PREMEDICATION
     Route: 065
     Dates: start: 20120725, end: 20120725
  25. METHYLPREDNISOLON [Concomitant]
     Route: 042
     Dates: start: 20101124
  26. METHOTREXATE [Concomitant]
     Route: 065

REACTIONS (15)
  - Asthma [Not Recovered/Not Resolved]
  - Emphysema [Not Recovered/Not Resolved]
  - Leukoplakia [Not Recovered/Not Resolved]
  - Infusion related reaction [Unknown]
  - Paraesthesia oral [Recovered/Resolved]
  - Nausea [Unknown]
  - Vomiting [Unknown]
  - Dyspnoea [Unknown]
  - Ear pruritus [Recovered/Resolved]
  - Dry throat [Recovered/Resolved]
  - Throat irritation [Recovered/Resolved]
  - Infusion related reaction [Recovered/Resolved]
  - Somnolence [Recovered/Resolved]
  - Dyspnoea [Recovered/Resolved]
  - Oropharyngeal discomfort [Unknown]
